FAERS Safety Report 7710739-8 (Version None)
Quarter: 2011Q3

REPORT INFORMATION
  Report Type: 
  Country: None (occurrence: None)
  Receive Date: 20110825
  Receipt Date: 20110818
  Transmission Date: 20111222
  Serious: Yes (Other)
  Sender: FDA-Public Use
  Company Number: FR-TEVA-297666ISR

PATIENT
  Sex: Female

DRUGS (6)
  1. VINCRISTINE [Suspect]
     Indication: ACUTE LYMPHOCYTIC LEUKAEMIA
     Route: 042
     Dates: start: 20090605, end: 20090626
  2. VALACYCLOVIR HYDROCHLORIDE [Concomitant]
     Dates: start: 20090615
  3. DEXAMETHASONE [Suspect]
     Indication: ACUTE LYMPHOCYTIC LEUKAEMIA
     Route: 048
     Dates: start: 20090605
  4. SPRYCEL [Suspect]
     Indication: ACUTE LYMPHOCYTIC LEUKAEMIA
     Route: 048
     Dates: start: 20090605
  5. IMOVANE [Concomitant]
     Dates: start: 20090530
  6. LANTUS [Concomitant]
     Dates: start: 20090604

REACTIONS (2)
  - PLEURAL EFFUSION [None]
  - PNEUMOCYSTIS JIROVECI INFECTION [None]
